FAERS Safety Report 7315020-7 (Version None)
Quarter: 2011Q1

REPORT INFORMATION
  Report Type: 
  Country: None (occurrence: None)
  Receive Date: 20110225
  Receipt Date: 20100405
  Transmission Date: 20110831
  Serious: No
  Sender: FDA-Public Use
  Company Number: US-MYLANLABS-2010S1003949

PATIENT
  Age: 14 Year
  Sex: Female
  Weight: 66 kg

DRUGS (5)
  1. AMNESTEEM [Suspect]
     Indication: ACNE
     Route: 048
     Dates: start: 20090331, end: 20100128
  2. AMNESTEEM [Suspect]
     Dates: end: 20100128
  3. AMNESTEEM [Suspect]
     Indication: ACNE CYSTIC
     Route: 048
     Dates: start: 20090331, end: 20100128
  4. AMNESTEEM [Suspect]
     Dates: end: 20100128
  5. CLARAVIS [Suspect]

REACTIONS (3)
  - HEADACHE [None]
  - VISUAL IMPAIRMENT [None]
  - DIZZINESS [None]
